FAERS Safety Report 20513939 (Version 1)
Quarter: 2022Q1

REPORT INFORMATION
  Report Type: Spontaneous
  Country: US (occurrence: None)
  Receive Date: 20220224
  Receipt Date: 20220224
  Transmission Date: 20220424
  Serious: Yes (Other)
  Sender: FDA-Public Use
  Company Number: None

PATIENT
  Age: 63 Year
  Sex: Female
  Weight: 54.43 kg

DRUGS (9)
  1. ROSUVASTATIN [Suspect]
     Active Substance: ROSUVASTATIN
     Indication: Blood cholesterol increased
     Dosage: OTHER STRENGTH : STARTED 5MG INCREA;?FREQUENCY : DAILY;?
     Route: 048
     Dates: end: 20211012
  2. Armovathroid [Concomitant]
  3. CORTEF [Concomitant]
     Active Substance: HYDROCORTISONE
  4. PROGESTERONE [Concomitant]
     Active Substance: PROGESTERONE
  5. ESTRADIOL [Concomitant]
     Active Substance: ESTRADIOL
  6. vito [Concomitant]
  7. B-vit [Concomitant]
  8. COQIO [Concomitant]
  9. LUTEIN [Concomitant]
     Active Substance: LUTEIN

REACTIONS (8)
  - Haemorrhage [None]
  - Haematoma [None]
  - Tooth discolouration [None]
  - Blood triglycerides increased [None]
  - C-reactive protein increased [None]
  - Hypercholesterolaemia [None]
  - Dark circles under eyes [None]
  - Blood iron increased [None]
